FAERS Safety Report 7238140-4 (Version None)
Quarter: 2011Q1

REPORT INFORMATION
  Report Type: 
  Country: None (occurrence: None)
  Receive Date: 20110121
  Receipt Date: 20110110
  Transmission Date: 20110831
  Serious: Yes (Hospitalization)
  Sender: FDA-Public Use
  Company Number: ES-SANOFI-AVENTIS-2011SA001660

PATIENT
  Age: 64 Year
  Sex: Male

DRUGS (6)
  1. APROVEL [Concomitant]
     Indication: HYPERTENSION
     Route: 048
     Dates: start: 20100201, end: 20101204
  2. RANOLAZINE [Suspect]
     Indication: MYOCARDIAL ISCHAEMIA
     Route: 048
     Dates: start: 20101201, end: 20101204
  3. ATENOLOL [Concomitant]
     Indication: ARRHYTHMIA
     Route: 048
     Dates: start: 19970101, end: 20101204
  4. MULTAQ [Suspect]
     Indication: ARRHYTHMIA
     Route: 048
     Dates: start: 20101117, end: 20101204
  5. CRESTOR [Concomitant]
     Indication: DYSLIPIDAEMIA
     Route: 048
     Dates: start: 20100201, end: 20101204
  6. SINTROM [Concomitant]
     Indication: ATRIAL FIBRILLATION
     Route: 048
     Dates: start: 20100201

REACTIONS (2)
  - RENAL FAILURE CHRONIC [None]
  - SINOATRIAL BLOCK [None]
